FAERS Safety Report 20105003 (Version 5)
Quarter: 2022Q1

REPORT INFORMATION
  Report Type: Spontaneous
  Country: US (occurrence: US)
  Receive Date: 20211124
  Receipt Date: 20220202
  Transmission Date: 20220423
  Serious: No
  Sender: FDA-Public Use
  Company Number: US-NOVARTISTESTPH-NVSC2021US268113

PATIENT
  Age: 86 Year
  Sex: Female

DRUGS (2)
  1. EXELON PATCH [Suspect]
     Active Substance: RIVASTIGMINE
     Indication: Product used for unknown indication
     Dosage: 9.5 MG
     Route: 065
  2. EXELON PATCH [Concomitant]
     Active Substance: RIVASTIGMINE
     Indication: Product used for unknown indication
     Dosage: 4.6 MG
     Route: 065

REACTIONS (4)
  - Product adhesion issue [Unknown]
  - Application site erythema [Unknown]
  - Underdose [Unknown]
  - Application site pruritus [Unknown]

NARRATIVE: CASE EVENT DATE: 20211113
